APPROVED DRUG PRODUCT: OXALIPLATIN
Active Ingredient: OXALIPLATIN
Strength: 50MG/VIAL
Dosage Form/Route: INJECTABLE;INTRAVENOUS
Application: A078803 | Product #001
Applicant: ACTAVIS TOTOWA LLC
Approved: Aug 8, 2012 | RLD: No | RS: No | Type: DISCN